FAERS Safety Report 7528509-2 (Version None)
Quarter: 2011Q2

REPORT INFORMATION
  Report Type: 
  Country: None (occurrence: None)
  Receive Date: 20110607
  Receipt Date: 20100810
  Transmission Date: 20111010
  Serious: No
  Sender: FDA-Public Use
  Company Number: US-ASTRAZENECA-2010SE38219

PATIENT
  Sex: Female

DRUGS (3)
  1. MORPHINE [Interacting]
     Route: 065
  2. PRILOSEC OTC [Suspect]
     Route: 048
     Dates: start: 20100701
  3. PRILOSEC OTC [Interacting]
     Route: 048
     Dates: start: 20100810, end: 20100810

REACTIONS (5)
  - HYPOAESTHESIA [None]
  - INCORRECT DRUG ADMINISTRATION DURATION [None]
  - INCORRECT DOSE ADMINISTERED [None]
  - DRUG INTERACTION [None]
  - HYPOAESTHESIA ORAL [None]
